FAERS Safety Report 9438350 (Version 1)
Quarter: 2013Q3

REPORT INFORMATION
  Report Type: Spontaneous
  Country: US (occurrence: US)
  Receive Date: 20130802
  Receipt Date: 20130802
  Transmission Date: 20140515
  Serious: No
  Sender: FDA-Public Use
  Company Number: US-BRISTOL-MYERS SQUIBB COMPANY-17172511

PATIENT
  Age: 57 Year
  Sex: Male
  Weight: 74.83 kg

DRUGS (1)
  1. COUMADIN TABS 5 MG [Suspect]
     Dosage: DOSE INCREASED TO 7.5MG
     Dates: start: 1998

REACTIONS (3)
  - Drug ineffective [Unknown]
  - Gout [Unknown]
  - Headache [Unknown]
